FAERS Safety Report 18348227 (Version 1)
Quarter: 2020Q4

REPORT INFORMATION
  Report Type: Spontaneous
  Country: JP (occurrence: JP)
  Receive Date: 20201006
  Receipt Date: 20201006
  Transmission Date: 20210114
  Serious: Yes (Other)
  Sender: FDA-Public Use
  Company Number: JP-ROCHE-2689811

PATIENT
  Age: 62 Year
  Sex: Male

DRUGS (1)
  1. AVASTIN [Suspect]
     Active Substance: BEVACIZUMAB
     Indication: GLIOMA
     Dosage: DOSAGE IS UNCERTAIN
     Route: 041
     Dates: start: 20150609

REACTIONS (2)
  - Hemiplegia [Unknown]
  - Infarction [Unknown]

NARRATIVE: CASE EVENT DATE: 201710
